FAERS Safety Report 8081725-6 (Version None)
Quarter: 2012Q1

REPORT INFORMATION
  Report Type: 
  Country: None (occurrence: None)
  Receive Date: 20120130
  Receipt Date: 20120125
  Transmission Date: 20120608
  Serious: Yes (Hospitalization)
  Sender: FDA-Public Use
  Company Number: US-VERTEX PHARMACEUTICALS INC.-AE-2012-001419

PATIENT
  Sex: Female

DRUGS (4)
  1. INCIVEK [Suspect]
     Indication: HEPATITIS C
     Dates: start: 20111102
  2. RIBAVIRIN [Concomitant]
     Indication: HEPATITIS C
     Dates: start: 20111102
  3. PROCRIT [Concomitant]
     Dates: start: 20111222
  4. PEGASYS [Concomitant]
     Indication: HEPATITIS C
     Dates: start: 20111102

REACTIONS (3)
  - PRURITUS [None]
  - DRY SKIN [None]
  - DEHYDRATION [None]
